FAERS Safety Report 8560406-6 (Version None)
Quarter: 2012Q3

REPORT INFORMATION
  Report Type: 
  Country: None (occurrence: None)
  Receive Date: 20120802
  Receipt Date: 20120723
  Transmission Date: 20120928
  Serious: Yes (Other)
  Sender: FDA-Public Use
  Company Number: US-JNJFOC-20120714079

PATIENT
  Age: 62 Year
  Sex: Male
  Weight: 85.71 kg

DRUGS (1)
  1. NICOTROL [Suspect]
     Indication: SMOKING CESSATION THERAPY
     Route: 065
     Dates: start: 20120608, end: 20120101

REACTIONS (3)
  - HYPERTENSION [None]
  - TACHYCARDIA [None]
  - FEELING ABNORMAL [None]
